FAERS Safety Report 9356743 (Version 3)
Quarter: 2013Q3

REPORT INFORMATION
  Report Type: Spontaneous
  Country: AU (occurrence: AU)
  Receive Date: 20130619
  Receipt Date: 20130717
  Transmission Date: 20140515
  Serious: Yes (Other)
  Sender: FDA-Public Use
  Company Number: PHHY2013AU062067

PATIENT
  Sex: Female

DRUGS (1)
  1. FAMVIR [Suspect]
     Indication: ORAL HERPES
     Dosage: 3 DF, UNK
     Route: 048

REACTIONS (4)
  - Suicidal ideation [Unknown]
  - Anger [Unknown]
  - Frustration [Unknown]
  - Oral herpes [Unknown]
